FAERS Safety Report 10169026 (Version 2)
Quarter: 2014Q2

REPORT INFORMATION
  Report Type: Spontaneous
  Country: IT (occurrence: IT)
  Receive Date: 20140513
  Receipt Date: 20140625
  Transmission Date: 20141212
  Serious: Yes (Hospitalization)
  Sender: FDA-Public Use
  Company Number: IT-SA-2014SA057141

PATIENT
  Age: 89 Year
  Sex: Male

DRUGS (8)
  1. LANTUS [Suspect]
     Indication: DIABETES MELLITUS
     Dosage: 1 VIAL OF 5 ML OF SC USE DOSE:26 UNIT(S)
     Route: 058
     Dates: start: 20140101, end: 20140428
  2. HUMULIN R [Suspect]
     Indication: DIABETES MELLITUS
     Dosage: 1 VIAL , 10 ML 100 U  / ML DOSE:30 UNIT(S)
     Route: 058
     Dates: start: 20140101, end: 20140418
  3. TIOTROPIUM BROMIDE [Concomitant]
  4. FLUTICASONE PROPIONATE/SALMETEROL XINAFOATE [Concomitant]
  5. BISOPROLOL HEMIFUMARATE [Concomitant]
     Route: 048
  6. RAMIPRIL [Concomitant]
  7. TAMSULOSIN HYDROCHLORIDE [Concomitant]
  8. CARDIOASPIRIN [Concomitant]
     Dosage: 100 MG GASTRORESISTANT TABLET, 30 TABLETS

REACTIONS (2)
  - Bradykinesia [Recovered/Resolved]
  - Hypoglycaemia [Recovered/Resolved]
